FAERS Safety Report 12381272 (Version 3)
Quarter: 2016Q3

REPORT INFORMATION
  Report Type: Spontaneous
  Country: BR (occurrence: BR)
  Receive Date: 20160518
  Receipt Date: 20160802
  Transmission Date: 20161109
  Serious: Yes (Hospitalization, Other)
  Sender: FDA-Public Use
  Company Number: PHHY2016BR066734

PATIENT
  Age: 8 Year
  Sex: Male
  Weight: 26 kg

DRUGS (4)
  1. EXJADE [Suspect]
     Active Substance: DEFERASIROX
     Indication: THALASSAEMIA BETA
     Dosage: 25 MG/KG, QD
     Route: 065
  2. EXJADE [Suspect]
     Active Substance: DEFERASIROX
     Dosage: 30 MG/KG, QD
     Route: 065
  3. EXJADE [Suspect]
     Active Substance: DEFERASIROX
     Dosage: 10 MG/KG, QD
     Route: 065
  4. EXJADE [Suspect]
     Active Substance: DEFERASIROX
     Dosage: 35 MG/KG, QD
     Route: 065

REACTIONS (18)
  - Lymphadenopathy [Unknown]
  - Spleen palpable [Unknown]
  - Abdominal pain upper [Unknown]
  - Nausea [Unknown]
  - Haemoglobin decreased [Unknown]
  - Jaundice [Unknown]
  - Infectious mononucleosis [Unknown]
  - Malaise [Unknown]
  - Influenza like illness [Recovered/Resolved]
  - Vomiting [Unknown]
  - Blood pressure decreased [Unknown]
  - Hepatotoxicity [Recovered/Resolved]
  - Liver palpable [Unknown]
  - White blood cell count increased [Unknown]
  - Ocular icterus [Unknown]
  - Fatigue [Unknown]
  - Serum ferritin increased [Unknown]
  - Haematocrit decreased [Unknown]
